FAERS Safety Report 6204712-9 (Version None)
Quarter: 2009Q2

REPORT INFORMATION
  Report Type: 
  Country: None (occurrence: None)
  Receive Date: 20090527
  Receipt Date: 20090521
  Transmission Date: 20091009
  Serious: Yes (Other)
  Sender: FDA-Public Use
  Company Number: PHEH2009US04403

PATIENT
  Sex: Female

DRUGS (1)
  1. TEKTURNA [Suspect]
     Indication: HYPERTENSION
     Dosage: 150 MG DAILY
     Route: 048

REACTIONS (3)
  - EXTRASYSTOLES [None]
  - HEART RATE IRREGULAR [None]
  - PALPITATIONS [None]
